FAERS Safety Report 5979465-X (Version None)
Quarter: 2008Q4

REPORT INFORMATION
  Report Type: 
  Country: None (occurrence: None)
  Receive Date: 20081204
  Receipt Date: 20081121
  Transmission Date: 20090506
  Serious: Yes (Hospitalization)
  Sender: FDA-Public Use
  Company Number: US-ELI_LILLY_AND_COMPANY-US200802004976

PATIENT
  Sex: Male
  Weight: 108.84 kg

DRUGS (2)
  1. ZYPREXA [Suspect]
     Dosage: 1 D/F, UNK
  2. ZYPREXA [Suspect]
     Dosage: 30 MG, UNK

REACTIONS (5)
  - BLOOD GLUCOSE ABNORMAL [None]
  - DIABETES MELLITUS [None]
  - ENDOCRINE DISORDER [None]
  - MYOCARDIAL INFARCTION [None]
  - OVERDOSE [None]
